FAERS Safety Report 7717760-4 (Version None)
Quarter: 2011Q3

REPORT INFORMATION
  Report Type: 
  Country: None (occurrence: None)
  Receive Date: 20110824
  Receipt Date: 20110817
  Transmission Date: 20111222
  Serious: Yes (Life-Threatening, Other)
  Sender: FDA-Public Use
  Company Number: 11-493

PATIENT
  Age: 17 Year
  Sex: Male

DRUGS (1)
  1. IBUPROFEN [Suspect]
     Indication: PNEUMONITIS
     Dosage: 1,000MG, BID, ORAL
     Route: 048

REACTIONS (5)
  - OFF LABEL USE [None]
  - OESOPHAGEAL ULCER HAEMORRHAGE [None]
  - OESOPHAGITIS [None]
  - BARRETT'S OESOPHAGUS [None]
  - GASTROOESOPHAGEAL REFLUX DISEASE [None]
